FAERS Safety Report 4720410-2 (Version None)
Quarter: 2005Q3

REPORT INFORMATION
  Report Type: 
  Country: None (occurrence: None)
  Receive Date: 20050719
  Receipt Date: 20050711
  Transmission Date: 20060218
  Serious: Yes (Hospitalization)
  Sender: FDA-Public Use
  Company Number: MEDI-0003545

PATIENT
  Age: 61 Year
  Sex: Female

DRUGS (2)
  1. ETHYOL [Suspect]
     Indication: RADIOTHERAPY
     Dosage: SUBCUTANEOUS
     Route: 058
     Dates: start: 20050526, end: 20050628
  2. RADIATION THERAPY [Concomitant]

REACTIONS (6)
  - BILE DUCT OBSTRUCTION [None]
  - CHEST PAIN [None]
  - DYSPHAGIA [None]
  - HYPOKALAEMIA [None]
  - PHARYNGOLARYNGEAL PAIN [None]
  - RADIATION OESOPHAGITIS [None]
